FAERS Safety Report 9412984 (Version 1)
Quarter: 2013Q3

REPORT INFORMATION
  Report Type: Spontaneous
  Country: CA (occurrence: CA)
  Receive Date: 20130722
  Receipt Date: 20130722
  Transmission Date: 20140515
  Serious: Yes (Death)
  Sender: FDA-Public Use
  Company Number: CA-GLAXOSMITHKLINE-A1018317A

PATIENT
  Age: 53 Year
  Sex: Female

DRUGS (11)
  1. TYKERB [Suspect]
     Indication: BREAST CANCER METASTATIC
     Dosage: 1250MG PER DAY
     Route: 048
     Dates: start: 20130303
  2. XELODA [Concomitant]
  3. LACTULOSE [Concomitant]
  4. LYRICA [Concomitant]
  5. HYDROMORPH CONTIN [Concomitant]
  6. NAPROXEN [Concomitant]
  7. ZOPICLONE [Concomitant]
  8. EFFEXOR [Concomitant]
  9. COLACE [Concomitant]
  10. SENOKOT [Concomitant]
  11. RADIATION THERAPY [Concomitant]

REACTIONS (4)
  - Dyspepsia [Recovered/Resolved]
  - Constipation [Recovered/Resolved]
  - Epistaxis [Recovered/Resolved]
  - Death [Fatal]
